FAERS Safety Report 7426874-8 (Version None)
Quarter: 2011Q2

REPORT INFORMATION
  Report Type: 
  Country: None (occurrence: None)
  Receive Date: 20110420
  Receipt Date: 20110418
  Transmission Date: 20111010
  Serious: Yes (Death)
  Sender: FDA-Public Use
  Company Number: GB-ABBOTT-11P-167-0719871-00

PATIENT
  Sex: Female
  Weight: 99 kg

DRUGS (3)
  1. SULPHASALAZINE [Concomitant]
     Indication: PRODUCT USED FOR UNKNOWN INDICATION
     Dates: start: 20071212, end: 20080415
  2. HUMIRA [Suspect]
     Indication: RHEUMATOID ARTHRITIS
     Route: 058
     Dates: start: 20071212, end: 20100323
  3. METHOTREXATE [Concomitant]
     Indication: PRODUCT USED FOR UNKNOWN INDICATION
     Dates: start: 20071212, end: 20080415

REACTIONS (3)
  - PSORIATIC ARTHROPATHY [None]
  - NEUTROPENIC SEPSIS [None]
  - ACUTE MYELOID LEUKAEMIA [None]
